FAERS Safety Report 7253584-2 (Version None)
Quarter: 2011Q1

REPORT INFORMATION
  Report Type: 
  Country: None (occurrence: None)
  Receive Date: 20110129
  Receipt Date: 20100407
  Transmission Date: 20110831
  Serious: No
  Sender: FDA-Public Use
  Company Number: US-ABBOTT-10P-163-0635931-00

PATIENT
  Sex: Female
  Weight: 89.438 kg

DRUGS (6)
  1. HUMIRA [Suspect]
     Indication: ANKYLOSING SPONDYLITIS
     Dates: start: 20100331
  2. SUCRALFATE [Concomitant]
     Indication: CROHN'S DISEASE
  3. NEXIUM [Concomitant]
     Indication: PRODUCT USED FOR UNKNOWN INDICATION
  4. HYDROCODONE [Concomitant]
     Indication: PAIN
  5. NORVASC [Concomitant]
     Indication: BLOOD PRESSURE
  6. OXYCODONE [Concomitant]
     Indication: PRODUCT USED FOR UNKNOWN INDICATION
     Dates: start: 20091101

REACTIONS (6)
  - BURNING SENSATION [None]
  - INSOMNIA [None]
  - PRURITUS [None]
  - SYSTEMIC LUPUS ERYTHEMATOSUS [None]
  - SINUS DISORDER [None]
  - ANKYLOSING SPONDYLITIS [None]
